FAERS Safety Report 7986336 (Version 4)
Quarter: 2013Q1

REPORT INFORMATION
  Report Type: Report from Study
  Country: GB (occurrence: GB)
  Receive Date: 20110610
  Receipt Date: 20130218
  Transmission Date: 20140127
  Serious: Yes (Death, Other)
  Sender: FDA-Public Use
  Company Number: GB-ABBOTT-11P-167-0731380-00

PATIENT
  Sex: Male
  Weight: 81 kg

DRUGS (2)
  1. HUMIRA 40 MG/ 0.8 ML PRE-FILLED SYRINGE [Suspect]
     Indication: RHEUMATOID ARTHRITIS
     Route: 058
     Dates: start: 20080315
  2. SULPHASALAZINE [Concomitant]
     Indication: PRODUCT USED FOR UNKNOWN INDICATION
     Dates: start: 20040602

REACTIONS (5)
  - Osteomyelitis [Fatal]
  - Bedridden [Fatal]
  - Disability [Fatal]
  - Pneumonia [Fatal]
  - Enterovesical fistula [Fatal]
